FAERS Safety Report 7299197-8 (Version None)
Quarter: 2011Q1

REPORT INFORMATION
  Report Type: 
  Country: None (occurrence: None)
  Receive Date: 20110217
  Receipt Date: 20110210
  Transmission Date: 20110831
  Serious: Yes (Other)
  Sender: FDA-Public Use
  Company Number: AU-PFIZER INC-2010091395

PATIENT
  Age: 25 Year
  Sex: Male

DRUGS (4)
  1. VALIUM [Suspect]
     Dosage: UNK
  2. PRISTIQ [Suspect]
     Dosage: UNK
  3. LARGACTIL [Suspect]
     Dosage: UNK
  4. XANAX [Suspect]
     Dosage: 4-6 TABLETS EACH DAY

REACTIONS (4)
  - AGITATION [None]
  - ANXIETY [None]
  - SELF-INJURIOUS IDEATION [None]
  - CONDITION AGGRAVATED [None]
